FAERS Safety Report 19102108 (Version 2)
Quarter: 2021Q2

REPORT INFORMATION
  Report Type: Spontaneous
  Country: GB (occurrence: GB)
  Receive Date: 20210407
  Receipt Date: 20210423
  Transmission Date: 20210717
  Serious: Yes (Other)
  Sender: FDA-Public Use
  Company Number: GB-PFIZER INC-2021349369

PATIENT
  Age: 27 Year
  Sex: Male

DRUGS (4)
  1. VINCRISTINE SULFATE. [Suspect]
     Active Substance: VINCRISTINE SULFATE
     Indication: HODGKIN^S DISEASE
     Dosage: 2.8 MG, CYCLIC (THESE DOSES WERE REPEATED AFTER SEVEN DAYS)
     Route: 042
     Dates: start: 197504
  2. PREDNISONE. [Concomitant]
     Active Substance: PREDNISONE
     Indication: HODGKIN^S DISEASE
     Dosage: 50 MG, DAILY
     Dates: start: 197504
  3. MUSTINE HCL [Concomitant]
     Indication: HODGKIN^S DISEASE
     Dosage: 12 MG, CYCLIC (THESE DOSES WERE REPEATED AFTER SEVEN DAYS)
     Dates: start: 197504
  4. PROCARBAZINE [Concomitant]
     Active Substance: PROCARBAZINE
     Indication: HODGKIN^S DISEASE
     Dosage: 200 MG, DAILY

REACTIONS (2)
  - Vocal cord paralysis [Recovered/Resolved]
  - Vagus nerve paralysis [Recovered/Resolved]
